FAERS Safety Report 14427266 (Version 1)
Quarter: 2018Q1

REPORT INFORMATION
  Report Type: Spontaneous
  Country: US (occurrence: US)
  Receive Date: 20180123
  Receipt Date: 20180123
  Transmission Date: 20180509
  Serious: No
  Sender: FDA-Public Use
  Company Number: US-IMPAX LABORATORIES, INC-2017-IPXL-03113

PATIENT
  Age: 83 Year
  Sex: Female
  Weight: 63 kg

DRUGS (2)
  1. RYTARY [Suspect]
     Active Substance: CARBIDOPA\LEVODOPA
     Indication: PARKINSON^S DISEASE
     Dosage: 48.75/195 MG, ONE CAPSULE FOUR TIMES DAILY
     Route: 048
     Dates: start: 20171024, end: 20171028
  2. RYTARY [Suspect]
     Active Substance: CARBIDOPA\LEVODOPA
     Dosage: 36.25/145MG 3 CAPSULES 4 TIMES PER DAY
     Route: 048

REACTIONS (3)
  - Nightmare [Recovered/Resolved]
  - Drug ineffective [Unknown]
  - Hallucination [Recovered/Resolved]

NARRATIVE: CASE EVENT DATE: 20171025
